FAERS Safety Report 8902551 (Version 1)
Quarter: 2012Q4

REPORT INFORMATION
  Report Type: 
  Country: DE (occurrence: DE)
  Receive Date: 20121112
  Receipt Date: 20121112
  Transmission Date: 20130627
  Serious: Yes (Other)
  Sender: FDA-Public Use
  Company Number: DE-ELI_LILLY_AND_COMPANY-DE201210009780

PATIENT
  Age: 72 Year
  Sex: Male

DRUGS (8)
  1. FORSTEO [Suspect]
     Indication: OSTEOPOROSIS
     Dosage: 20 ug, qd
     Route: 058
     Dates: start: 201203
  2. BELOC-ZOC MITE [Concomitant]
     Dosage: 47.5 mg, UNK
  3. TOREM [Concomitant]
     Dosage: 5 mg, UNK
  4. CORDAREX [Concomitant]
     Dosage: 200 mg, UNK
  5. MAGNESIUM [Concomitant]
  6. SIMVASTATIN [Concomitant]
     Dosage: 20 mg, UNK
  7. XARELTO [Concomitant]
     Dosage: 20 mg, UNK
  8. VITAMIN D [Concomitant]

REACTIONS (5)
  - Arrhythmia [Not Recovered/Not Resolved]
  - Asthenia [Not Recovered/Not Resolved]
  - Hyperhidrosis [Not Recovered/Not Resolved]
  - Dyspnoea [Not Recovered/Not Resolved]
  - Micturition urgency [Not Recovered/Not Resolved]
